FAERS Safety Report 14172202 (Version 2)
Quarter: 2017Q4

REPORT INFORMATION
  Report Type: Spontaneous
  Country: JP (occurrence: JP)
  Receive Date: 20171109
  Receipt Date: 20171202
  Transmission Date: 20180321
  Serious: Yes (Death, Other)
  Sender: FDA-Public Use
  Company Number: JP-ROCHE-2019455

PATIENT
  Age: 65 Year
  Sex: Female
  Weight: 58 kg

DRUGS (2)
  1. AVASTIN [Suspect]
     Active Substance: BEVACIZUMAB
     Indication: BREAST CANCER
     Dosage: TREATMENT LINE: 1ST
     Route: 041
     Dates: start: 20170908, end: 20170908
  2. PACLITAXEL. [Concomitant]
     Active Substance: PACLITAXEL
     Indication: BREAST CANCER
     Dosage: DOSAGE IS UNCERTAIN.
     Route: 041
     Dates: start: 20170908, end: 20170908

REACTIONS (3)
  - Cervical vertebral fracture [Unknown]
  - Subarachnoid haemorrhage [Fatal]
  - Fall [Unknown]

NARRATIVE: CASE EVENT DATE: 20170909
